FAERS Safety Report 6197252-7 (Version None)
Quarter: 2009Q2

REPORT INFORMATION
  Report Type: 
  Country: None (occurrence: None)
  Receive Date: 20090521
  Receipt Date: 20071002
  Transmission Date: 20091009
  Serious: Yes (Hospitalization, Other)
  Sender: FDA-Public Use
  Company Number: US-ASTRAZENECA-2007UW04473

PATIENT
  Age: 14950 Day
  Sex: Female
  Weight: 136.1 kg

DRUGS (26)
  1. SEROQUEL [Suspect]
     Dosage: 25 TO 350 MG
     Route: 048
     Dates: start: 20001108, end: 20060522
  2. ATIVAN [Concomitant]
     Indication: ANXIETY
     Dosage: 1 TO 2 MG
     Route: 048
  3. CLONAZEPAM [Concomitant]
     Dosage: 0.5 TO 1 MG
     Route: 048
  4. COMBIVENT [Concomitant]
  5. EFFEXOR [Concomitant]
     Dosage: 75 TO 300 MG
     Route: 048
  6. ETODOLAC [Concomitant]
     Dosage: 300, 400 MG
     Route: 048
  7. FAMOTIDINE [Concomitant]
     Route: 048
  8. FLOVENT [Concomitant]
  9. GEODON [Concomitant]
     Dosage: 40, 60 MG
     Route: 048
  10. GLIPIZIDE [Concomitant]
     Dosage: 2.5, 5 MG
     Route: 048
  11. HALDOL [Concomitant]
     Route: 048
     Dates: start: 20010924
  12. HYDROCORTISONE [Concomitant]
  13. HYZAAR [Concomitant]
     Dosage: 100/25 MG
     Route: 048
  14. LITHIUM [Concomitant]
     Dosage: 300-900 MG
     Route: 048
  15. NYSTATIN [Concomitant]
     Route: 061
  16. PAXIL [Concomitant]
  17. PROTONIX [Concomitant]
     Route: 048
  18. PREVACID [Concomitant]
     Route: 048
  19. PROVENTIL [Concomitant]
  20. PROZAC [Concomitant]
     Route: 048
  21. REMERON [Concomitant]
     Dosage: 30 TO 45 MG
     Route: 048
  22. RISPERDAL [Concomitant]
     Route: 048
  23. TRAZODONE HCL [Concomitant]
     Dosage: 50 TO 400 MG
     Route: 048
  24. TYLENOL [Concomitant]
     Dosage: 325 TO 650 MG
     Route: 048
  25. VISTARIL [Concomitant]
     Indication: ANXIETY
     Route: 048
  26. WELLBUTRIN [Concomitant]
     Route: 048

REACTIONS (34)
  - AFFECTIVE DISORDER [None]
  - ANXIETY [None]
  - BIPOLAR DISORDER [None]
  - BORDERLINE PERSONALITY DISORDER [None]
  - CHEST PAIN [None]
  - COUGH [None]
  - DIABETES MELLITUS [None]
  - DIABETIC KETOACIDOSIS [None]
  - DIARRHOEA [None]
  - DYSPNOEA [None]
  - DYSTHYMIC DISORDER [None]
  - FAMILY STRESS [None]
  - FATIGUE [None]
  - FEELINGS OF WORTHLESSNESS [None]
  - HAEMORRHOIDS [None]
  - HIRSUTISM [None]
  - IRRITABILITY [None]
  - IRRITABLE BOWEL SYNDROME [None]
  - MAJOR DEPRESSION [None]
  - MANIA [None]
  - MASS [None]
  - MUSCLE SPASMS [None]
  - MUSCULOSKELETAL PAIN [None]
  - NAUSEA [None]
  - NECK PAIN [None]
  - OSTEOARTHRITIS [None]
  - PANCREATITIS [None]
  - POST-TRAUMATIC STRESS DISORDER [None]
  - POSTNASAL DRIP [None]
  - SEASONAL ALLERGY [None]
  - SINUSITIS [None]
  - SUBSTANCE ABUSE [None]
  - SUICIDAL IDEATION [None]
  - TYPE 2 DIABETES MELLITUS [None]
